FAERS Safety Report 4595741-X (Version None)
Quarter: 2005Q1

REPORT INFORMATION
  Report Type: 
  Country: None (occurrence: None)
  Receive Date: 20050224
  Receipt Date: 20050224
  Transmission Date: 20050727
  Serious: Yes (Hospitalization)
  Sender: FDA-Public Use
  Company Number: None

PATIENT
  Age: 78 Year
  Sex: Female
  Weight: 61.3 kg

DRUGS (10)
  1. PHENYTOIN [Suspect]
     Indication: CONVULSION
     Dosage: 100MG  BID + 300MG HS ORAL
     Route: 048
     Dates: start: 20041223, end: 20050106
  2. DIGOXIN [Concomitant]
  3. NADOLOL [Concomitant]
  4. NIFEDIPINE [Concomitant]
  5. PRAVACHOL [Concomitant]
  6. AMARYL [Concomitant]
  7. LANTUS [Concomitant]
  8. SLIDING SCALE INSULIN [Concomitant]
  9. SENOKOT [Concomitant]
  10. LUMIGAN EYE DROPS [Concomitant]

REACTIONS (8)
  - BRADYCARDIA [None]
  - COORDINATION ABNORMAL [None]
  - DRUG LEVEL BELOW THERAPEUTIC [None]
  - DRUG TOXICITY [None]
  - FALL [None]
  - JOINT INJURY [None]
  - MEDICATION ERROR [None]
  - WRIST FRACTURE [None]
